FAERS Safety Report 25903229 (Version 3)
Quarter: 2025Q4

REPORT INFORMATION
  Report Type: Spontaneous
  Country: JP (occurrence: JP)
  Receive Date: 20251009
  Receipt Date: 20251030
  Transmission Date: 20260118
  Serious: Yes (Death, Life-Threatening)
  Sender: SERVIER
  Company Number: JP-I.R.I.S.-S25012280

PATIENT

DRUGS (3)
  1. TIBSOVO [Suspect]
     Active Substance: IVOSIDENIB
     Indication: Acute lymphocytic leukaemia recurrent
     Dosage: 500 MG, QD
     Route: 048
     Dates: start: 20250805, end: 20250811
  2. TIBSOVO [Suspect]
     Active Substance: IVOSIDENIB
     Dosage: 500 MG, QD
     Route: 048
     Dates: start: 202508, end: 2025
  3. AZACITIDINE [Concomitant]
     Active Substance: AZACITIDINE
     Indication: Acute lymphocytic leukaemia recurrent
     Dosage: UNK
     Route: 065
     Dates: start: 20250805, end: 20250808

REACTIONS (4)
  - Differentiation syndrome [Fatal]
  - Differentiation syndrome [Recovered/Resolved]
  - Abdominal discomfort [Unknown]
  - Blood bilirubin increased [Unknown]

NARRATIVE: CASE EVENT DATE: 20250101
